FAERS Safety Report 23915985 (Version 1)
Quarter: 2024Q2

REPORT INFORMATION
  Report Type: Spontaneous
  Country: US (occurrence: US)
  Receive Date: 20240529
  Receipt Date: 20240529
  Transmission Date: 20240716
  Serious: No
  Sender: FDA-Public Use
  Company Number: US-SA-SAC20240524000150

PATIENT
  Age: 44 Year
  Sex: Male

DRUGS (2)
  1. DUPIXENT [Suspect]
     Active Substance: DUPILUMAB
     Indication: Upper-airway cough syndrome
     Dosage: 600 MG, 1X
     Route: 058
     Dates: start: 20240506, end: 20240506
  2. DUPIXENT [Suspect]
     Active Substance: DUPILUMAB
     Indication: Cough
     Dosage: 300 MG, QOW
     Route: 058
     Dates: start: 20240519

REACTIONS (4)
  - Eosinophil count increased [Unknown]
  - Respiratory disorder [Unknown]
  - Lung disorder [Unknown]
  - Product use in unapproved indication [Unknown]

NARRATIVE: CASE EVENT DATE: 20240501
